FAERS Safety Report 5133041-X (Version None)
Quarter: 2006Q4

REPORT INFORMATION
  Report Type: 
  Country: None (occurrence: None)
  Receive Date: 20061018
  Receipt Date: 20061011
  Transmission Date: 20070319
  Serious: Yes (Other)
  Sender: FDA-Public Use
  Company Number: 148084ISR

PATIENT
  Age: 42 Year
  Sex: Male

DRUGS (1)
  1. COPAXONE [Suspect]
     Indication: MULTIPLE SCLEROSIS
     Dosage: 20 MG (20 MG,1 IN 1 D)
     Route: 058
     Dates: start: 19991001, end: 20061001

REACTIONS (3)
  - DRUG INTERACTION [None]
  - GLIOBLASTOMA [None]
  - HEMIPARESIS [None]
